FAERS Safety Report 23562687 (Version 1)
Quarter: 2024Q1

REPORT INFORMATION
  Report Type: Spontaneous
  Country: US (occurrence: US)
  Receive Date: 20240226
  Receipt Date: 20240226
  Transmission Date: 20240410
  Serious: No
  Sender: FDA-Public Use
  Company Number: US-SA-SAC20240219000262

PATIENT
  Age: 28 Year
  Sex: Male

DRUGS (2)
  1. DUPIXENT [Suspect]
     Active Substance: DUPILUMAB
     Indication: Eczema
     Dosage: 600 MG, 1X
     Route: 058
     Dates: start: 20240116, end: 20240116
  2. DUPIXENT [Suspect]
     Active Substance: DUPILUMAB
     Indication: Alopecia
     Dosage: 300 MG, QOW
     Route: 058
     Dates: start: 20240209

REACTIONS (1)
  - Product use in unapproved indication [Unknown]

NARRATIVE: CASE EVENT DATE: 20240116
